FAERS Safety Report 8917225 (Version 1)
Quarter: 2012Q4

REPORT INFORMATION
  Report Type: 
  Country: FR (occurrence: FR)
  Receive Date: 20121120
  Receipt Date: 20121120
  Transmission Date: 20130627
  Serious: Yes (Death)
  Sender: FDA-Public Use
  Company Number: FR-PFIZER INC-2012289530

PATIENT
  Age: 72 Year
  Sex: Female

DRUGS (10)
  1. CORDARONE [Suspect]
     Indication: CARDIAC DYSRHYTHMIA, UNSPECIFIED
     Dosage: 200 mg, Daily
     Route: 048
     Dates: end: 19921019
  2. MYOLASTAN [Suspect]
     Indication: DRUG USE FOR UNKNOWN INDICATION
     Dosage: 25 mg,Daily
     Route: 048
     Dates: end: 19921016
  3. HAVLANE [Suspect]
     Indication: DRUG USE FOR UNKNOWN INDICATION
     Dosage: UNK
     Route: 048
  4. URBANYL [Suspect]
     Indication: DRUG USE FOR UNKNOWN INDICATION
     Dosage: UNK
     Route: 048
  5. DI-ANTALVIC [Suspect]
     Indication: DRUG USE FOR UNKNOWN INDICATION
     Dosage: UNK
     Route: 048
  6. PROZAC [Suspect]
     Indication: DEPRESSION
     Dosage: UNK
     Route: 048
  7. LEXOMIL [Suspect]
     Indication: ANXIETY
     Dosage: UNK
     Route: 048
     Dates: end: 19921016
  8. MODOPAR [Suspect]
     Indication: SECONDARY PARKINSONISM
     Dosage: UNK
     Route: 048
  9. DOPERGINE [Suspect]
     Indication: SECONDARY PARKINSONISM
     Dosage: UNK
     Route: 048
     Dates: start: 1992, end: 1992
  10. LIPANTHYL [Suspect]
     Indication: DRUG USE FOR UNKNOWN INDICATION
     Dosage: UNK
     Route: 048

REACTIONS (3)
  - Respiratory failure [Fatal]
  - Right ventricular failure [Fatal]
  - Bradycardia [Fatal]
